FAERS Safety Report 24631156 (Version 2)
Quarter: 2024Q4

REPORT INFORMATION
  Report Type: Report from Study
  Country: GB (occurrence: GB)
  Receive Date: 20241118
  Receipt Date: 20241213
  Transmission Date: 20250114
  Serious: Yes (Death, Hospitalization)
  Sender: NOVARTIS
  Company Number: GB-002147023-NVSC2024GB220320

PATIENT
  Sex: Male

DRUGS (3)
  1. SANDOSTATIN LAR DEPOT [Suspect]
     Active Substance: OCTREOTIDE ACETATE
     Indication: Product used for unknown indication
     Dosage: UNK
     Route: 030
  2. SANDOSTATIN LAR DEPOT [Suspect]
     Active Substance: OCTREOTIDE ACETATE
  3. SANDOSTATIN LAR DEPOT [Suspect]
     Active Substance: OCTREOTIDE ACETATE

REACTIONS (2)
  - Hepatic cirrhosis [Fatal]
  - Dehydration [Unknown]

NARRATIVE: CASE EVENT DATE: 20241123
